FAERS Safety Report 11004545 (Version 2)
Quarter: 2015Q2

REPORT INFORMATION
  Report Type: Spontaneous
  Country: US (occurrence: US)
  Receive Date: 20150409
  Receipt Date: 20150512
  Transmission Date: 20150821
  Serious: Yes (Hospitalization)
  Sender: FDA-Public Use
  Company Number: US-009507513-1504USA000264

PATIENT
  Age: 2 Year

DRUGS (2)
  1. IRINOTECAN HYDROCHLORIDE. [Concomitant]
     Active Substance: IRINOTECAN HYDROCHLORIDE
     Dosage: UNK
  2. TEMODAR [Suspect]
     Active Substance: TEMOZOLOMIDE
     Indication: EWING^S SARCOMA
     Dosage: 65 MG, DAILY
     Route: 048
     Dates: end: 20150331

REACTIONS (4)
  - Vomiting [Recovered/Resolved]
  - Adverse event [Recovered/Resolved]
  - Wrong technique in drug usage process [Unknown]
  - Drug administration error [Unknown]
